FAERS Safety Report 11751949 (Version 7)
Quarter: 2019Q1

REPORT INFORMATION
  Report Type: Spontaneous
  Country: US (occurrence: US)
  Receive Date: 20151118
  Receipt Date: 20190328
  Transmission Date: 20190417
  Serious: Yes (Hospitalization, Other)
  Sender: FDA-Public Use
  Company Number: US-DSJP-DSU-2015-118402

PATIENT

DRUGS (5)
  1. BENICAR [Suspect]
     Active Substance: OLMESARTAN MEDOXOMIL
     Indication: HYPERTENSION
     Dosage: 20 MG, QD
     Dates: start: 20080318, end: 201407
  2. PROTONIX [Concomitant]
     Active Substance: PANTOPRAZOLE SODIUM
     Indication: PRODUCT USED FOR UNKNOWN INDICATION
     Dosage: 40 MG, BID
  3. LASIX [Concomitant]
     Active Substance: FUROSEMIDE
     Indication: PRODUCT USED FOR UNKNOWN INDICATION
     Dosage: 20 MG, PRN
     Dates: start: 201311
  4. ASPIRIN. [Concomitant]
     Active Substance: ASPIRIN
     Indication: PRODUCT USED FOR UNKNOWN INDICATION
     Dosage: 81 MG, QD
  5. BENICAR [Suspect]
     Active Substance: OLMESARTAN MEDOXOMIL
     Dosage: 10 MG, UNK

REACTIONS (16)
  - Gastrooesophageal reflux disease [Unknown]
  - Fall [Unknown]
  - Normocytic anaemia [Unknown]
  - Hypotension [Unknown]
  - Pain [Unknown]
  - Coeliac disease [Recovered/Resolved]
  - Erosive oesophagitis [Unknown]
  - Hiatus hernia [Recovered/Resolved]
  - Haemorrhoids [Recovered/Resolved]
  - Polyp [Unknown]
  - Diverticulum [Recovering/Resolving]
  - Intestinal perforation [Unknown]
  - Hepatic function abnormal [Recovered/Resolved]
  - Muscular weakness [Unknown]
  - Sprue-like enteropathy [Recovering/Resolving]
  - Sensory loss [Unknown]

NARRATIVE: CASE EVENT DATE: 20100527
